FAERS Safety Report 23817171 (Version 2)
Quarter: 2024Q2

REPORT INFORMATION
  Report Type: Spontaneous
  Country: US (occurrence: US)
  Receive Date: 20240505
  Receipt Date: 20240514
  Transmission Date: 20240716
  Serious: Yes (Other)
  Sender: FDA-Public Use
  Company Number: US-ORPHANEU-2024002991

PATIENT

DRUGS (3)
  1. SILTUXIMAB [Suspect]
     Active Substance: SILTUXIMAB
     Indication: Castleman^s disease
     Dosage: 11 MILLIGRAM/KILOGRAM, QW
     Route: 042
  2. SILTUXIMAB [Suspect]
     Active Substance: SILTUXIMAB
     Dosage: 11 MG/KG, QW FOR 4 WEEKS
     Route: 042
  3. SILTUXIMAB [Suspect]
     Active Substance: SILTUXIMAB
     Dosage: 11 MG/KG,EVERY 3 WEEKS
     Route: 042

REACTIONS (5)
  - Cytokine storm [Unknown]
  - Fungaemia [Unknown]
  - Cytomegalovirus viraemia [Unknown]
  - Off label use [Recovered/Resolved]
  - Therapeutic product effect incomplete [Recovered/Resolved]
